FAERS Safety Report 4766432-7 (Version None)
Quarter: 2005Q3

REPORT INFORMATION
  Report Type: 
  Country: None (occurrence: None)
  Receive Date: 20050912
  Receipt Date: 20050830
  Transmission Date: 20060218
  Serious: Yes (Disabling)
  Sender: FDA-Public Use
  Company Number: JP-ROCHE-416331

PATIENT
  Age: 52 Year
  Sex: Male

DRUGS (9)
  1. PEG-INTERFERON A-2A (RO 25-8310) [Suspect]
     Route: 058
     Dates: start: 20040405, end: 20050201
  2. URSODIOL [Concomitant]
     Dosage: ORAL FORMULATION.
     Route: 048
  3. LAC B [Concomitant]
     Dosage: ORAL FORMULATION.
     Route: 048
  4. PROMAC [Concomitant]
     Route: 048
  5. WASSER V [Concomitant]
     Route: 048
  6. ACINON [Concomitant]
     Route: 048
  7. TERNELIN [Concomitant]
     Dosage: ORAL FORMULATION.
     Route: 048
  8. MEILAX [Concomitant]
     Dosage: ORAL FORMULATION.
     Route: 048
  9. GOODMIN [Concomitant]
     Route: 048

REACTIONS (2)
  - DRUG WITHDRAWAL SYNDROME [None]
  - STRESS [None]
